FAERS Safety Report 4622368-3 (Version None)
Quarter: 2005Q1

REPORT INFORMATION
  Report Type: 
  Country: None (occurrence: None)
  Receive Date: 20050328
  Receipt Date: 20050315
  Transmission Date: 20050727
  Serious: Yes (Death, Other)
  Sender: FDA-Public Use
  Company Number: 2005045081

PATIENT
  Sex: Male

DRUGS (7)
  1. NORVASC [Suspect]
     Indication: ILL-DEFINED DISORDER
     Dosage: ORAL
     Route: 048
  2. NEURONTIN [Suspect]
     Indication: ILL-DEFINED DISORDER
     Dosage: ORAL
     Route: 048
  3. ACETYLSALICYLIC ACID SRT [Suspect]
     Indication: CEREBRAL THROMBOSIS
     Dosage: 75 MG (75 MG, 1 IN 1 D) ORAL
     Route: 048
     Dates: end: 20041215
  4. DICLOFENAC SODIUM [Suspect]
     Indication: ILL-DEFINED DISORDER
     Dosage: 150 MG (1 D) ORAL
     Route: 048
     Dates: start: 20040501, end: 20041215
  5. CITALOPRAM HYDROBROMIDE [Suspect]
     Indication: DEPRESSION
     Dosage: 20 MG (20 MG, 1 IN 1 D) ORAL
     Route: 048
  6. METOPROLOL SUCCINATE [Concomitant]
  7. RAMIPRIL [Concomitant]

REACTIONS (8)
  - ARTERIOSCLEROSIS [None]
  - CEREBRAL HAEMORRHAGE [None]
  - CHEST PAIN [None]
  - DUODENAL ULCER PERFORATION [None]
  - FEELING ABNORMAL [None]
  - GASTROINTESTINAL HAEMORRHAGE [None]
  - PALLOR [None]
  - SHOCK [None]
